FAERS Safety Report 5120511-3 (Version None)
Quarter: 2006Q4

REPORT INFORMATION
  Report Type: 
  Country: None (occurrence: None)
  Receive Date: 20061004
  Receipt Date: 20040812
  Transmission Date: 20070319
  Serious: Yes (Other)
  Sender: FDA-Public Use
  Company Number: 200416123US

PATIENT
  Sex: Female
  Weight: 74.54 kg

DRUGS (15)
  1. LOVENOX [Suspect]
     Indication: DEEP VEIN THROMBOSIS
     Route: 058
     Dates: start: 20030201
  2. LOVENOX [Suspect]
     Route: 058
     Dates: end: 20030701
  3. LOVENOX [Suspect]
     Route: 058
     Dates: start: 20030728, end: 20030728
  4. LOVENOX [Suspect]
     Route: 058
     Dates: start: 20060728
  5. NUBAIN [Concomitant]
     Route: 042
     Dates: start: 20030727, end: 20030727
  6. PITOCIN [Concomitant]
     Dosage: DOSE: 20/1000CC LR
     Route: 042
     Dates: start: 20030727, end: 20030727
  7. PERCOCET [Concomitant]
     Dosage: DOSE: 2 TABLETS
     Dates: start: 20030727
  8. XANAX [Concomitant]
  9. DEMEROL [Concomitant]
     Dates: start: 20030728
  10. DILAUDID [Concomitant]
     Dosage: FREQUENCY: EVERY 6 TO 8 HOURS
     Route: 042
     Dates: start: 20030728, end: 20030728
  11. ATIVAN [Concomitant]
     Route: 042
  12. PHENERGAN [Concomitant]
     Route: 030
     Dates: start: 20030728
  13. TYLENOL [Concomitant]
     Route: 048
     Dates: start: 20030727
  14. VITAMINS [Concomitant]
     Dosage: DOSE: UNK
  15. COUMADIN [Concomitant]
     Dosage: DOSE: UNK
     Dates: start: 20020701, end: 20021001

REACTIONS (19)
  - ARTHRALGIA [None]
  - BLOOD ALBUMIN DECREASED [None]
  - BLOOD ALKALINE PHOSPHATASE INCREASED [None]
  - CHORIOAMNIONITIS [None]
  - CONDITION AGGRAVATED [None]
  - DEEP VEIN THROMBOSIS [None]
  - HAEMATOCRIT DECREASED [None]
  - HAEMOGLOBIN DECREASED [None]
  - MUSCULOSKELETAL CHEST PAIN [None]
  - PHLEBITIS [None]
  - PLACENTAL INFARCTION [None]
  - PLACENTAL INSUFFICIENCY [None]
  - PLATELET COUNT INCREASED [None]
  - PROTEIN S DECREASED [None]
  - PULMONARY EMBOLISM [None]
  - RED BLOOD CELL MORPHOLOGY ABNORMAL [None]
  - UMBILICAL CORD ABNORMALITY [None]
  - VASCULITIS [None]
  - WHITE BLOOD CELL COUNT INCREASED [None]
